FAERS Safety Report 23382625 (Version 1)
Quarter: 2024Q1

REPORT INFORMATION
  Report Type: Spontaneous
  Country: US (occurrence: US)
  Receive Date: 20240109
  Receipt Date: 20240109
  Transmission Date: 20240410
  Serious: Yes (Other)
  Sender: FDA-Public Use
  Company Number: US-PFIZER INC-202400002638

PATIENT
  Age: 67 Year
  Sex: Female
  Weight: 104.78 kg

DRUGS (2)
  1. PAXLOVID [Suspect]
     Active Substance: NIRMATRELVIR\RITONAVIR
     Indication: COVID-19 treatment
     Dosage: 300 MILLIGRAMS 100 MILLIGRAMS DOSE PACK, ORAL, TWICE A DAY
     Route: 048
     Dates: start: 20231227
  2. NEXIUM [Concomitant]
     Active Substance: ESOMEPRAZOLE MAGNESIUM
     Indication: Antacid therapy
     Dosage: UNK

REACTIONS (10)
  - Hallucination [Recovering/Resolving]
  - Poisoning [Recovering/Resolving]
  - Hot flush [Recovering/Resolving]
  - Feeling cold [Recovering/Resolving]
  - Nightmare [Recovering/Resolving]
  - Insomnia [Recovering/Resolving]
  - Dyspepsia [Recovering/Resolving]
  - Panic attack [Recovering/Resolving]
  - Anxiety [Recovering/Resolving]
  - Hyperhidrosis [Recovering/Resolving]

NARRATIVE: CASE EVENT DATE: 20231201
